FAERS Safety Report 21830602 (Version 1)
Quarter: 2023Q1

REPORT INFORMATION
  Report Type: Spontaneous
  Country: US (occurrence: None)
  Receive Date: 20230106
  Receipt Date: 20230106
  Transmission Date: 20230417
  Serious: Yes (Death, Hospitalization)
  Sender: FDA-Public Use
  Company Number: None

PATIENT
  Age: 71 Year
  Sex: Male
  Weight: 56 kg

DRUGS (2)
  1. ABIRATERONE ACETATE [Suspect]
     Active Substance: ABIRATERONE ACETATE
     Dates: end: 20221227
  2. PREDNISONE [Concomitant]
     Active Substance: PREDNISONE
     Dates: end: 20221227

REACTIONS (8)
  - Haematemesis [None]
  - Haemorrhage intracranial [None]
  - Cerebral haematoma [None]
  - Coma [None]
  - Hiatus hernia [None]
  - Erosive oesophagitis [None]
  - Thrombosis [None]
  - Endoscopy upper gastrointestinal tract abnormal [None]

NARRATIVE: CASE EVENT DATE: 20230104
